FAERS Safety Report 7521536-0 (Version None)
Quarter: 2011Q2

REPORT INFORMATION
  Report Type: 
  Country: None (occurrence: None)
  Receive Date: 20110531
  Receipt Date: 20110517
  Transmission Date: 20111010
  Serious: Yes (Death)
  Sender: FDA-Public Use
  Company Number: PI-05671

PATIENT
  Age: 85 Year
  Sex: Female

DRUGS (1)
  1. CHLORAPREP [Suspect]
     Indication: THERAPEUTIC SKIN CARE TOPICAL
     Dosage: 10.5ML, ONCE, TOPICAL
     Route: 061
     Dates: start: 20110301

REACTIONS (1)
  - DEATH [None]
